FAERS Safety Report 7551908-X (Version None)
Quarter: 2011Q2

REPORT INFORMATION
  Report Type: 
  Country: None (occurrence: None)
  Receive Date: 20110616
  Receipt Date: 20110606
  Transmission Date: 20111010
  Serious: Yes (Death, Other)
  Sender: FDA-Public Use
  Company Number: US-BAYER-201041797NA

PATIENT
  Age: 75 Year
  Sex: Female
  Weight: 67 kg

DRUGS (13)
  1. VASOTEC [Concomitant]
     Route: 048
  2. VANCOMYCIN [Concomitant]
     Dosage: 1 GRAM
     Route: 042
     Dates: start: 19951102
  3. NEOSYNEPHRINE [Concomitant]
     Dosage: UNK
     Route: 042
     Dates: start: 19951102
  4. NITROGLYCERIN [Concomitant]
     Dosage: UNK
     Route: 042
     Dates: start: 19951102
  5. TRASYLOL [Suspect]
     Indication: CORONARY ARTERY BYPASS
     Dosage: INITIAL TEST DOSE
     Route: 042
     Dates: start: 19951102, end: 19951102
  6. LANOXIN [Concomitant]
     Route: 048
  7. MANDOL [Concomitant]
     Dosage: 2 GMS
     Route: 042
     Dates: start: 19951102
  8. ACETYLSALICYLIC ACID SRT [Concomitant]
     Dosage: 81 MG
     Route: 048
  9. POTASSIUM CHLORIDE [Concomitant]
     Dosage: 20 MILLIEQUIVALENT
     Route: 042
     Dates: start: 19951102
  10. LASIX [Concomitant]
     Route: 048
  11. TRASYLOL [Suspect]
     Dosage: 200 ML THEN 50 CC PER HOUR
     Route: 042
     Dates: start: 19951102, end: 19951102
  12. HEPARIN [Concomitant]
     Dosage: 440 MG TOTAL
     Route: 042
     Dates: start: 19951102
  13. RED BLOOD CELLS [Concomitant]
     Dosage: 2 U
     Route: 042
     Dates: start: 19951102

REACTIONS (13)
  - DEATH [None]
  - RENAL INJURY [None]
  - ANXIETY [None]
  - RENAL FAILURE [None]
  - FEAR [None]
  - INJURY [None]
  - PAIN [None]
  - BRADYCARDIA [None]
  - RENAL IMPAIRMENT [None]
  - STRESS [None]
  - UNEVALUABLE EVENT [None]
  - MULTI-ORGAN FAILURE [None]
  - EMOTIONAL DISTRESS [None]
